FAERS Safety Report 9893390 (Version 2)
Quarter: 2014Q1

REPORT INFORMATION
  Report Type: Report from Study
  Country: US (occurrence: US)
  Receive Date: 20140213
  Receipt Date: 20140213
  Transmission Date: 20141002
  Serious: Yes (Hospitalization)
  Sender: FDA-Public Use
  Company Number: US-JNJFOC-20131209650

PATIENT
  Age: 91 Year
  Sex: Female
  Weight: 47 kg

DRUGS (13)
  1. XARELTO [Suspect]
     Indication: CEREBROVASCULAR ACCIDENT PROPHYLAXIS
     Route: 048
     Dates: start: 20130512, end: 20130704
  2. XARELTO [Suspect]
     Indication: CEREBROVASCULAR ACCIDENT PROPHYLAXIS
     Route: 048
     Dates: start: 20130720
  3. XARELTO [Suspect]
     Indication: ATRIAL FIBRILLATION
     Route: 048
     Dates: start: 20130720
  4. XARELTO [Suspect]
     Indication: ATRIAL FIBRILLATION
     Route: 048
     Dates: start: 20130512, end: 20130704
  5. ASPIRIN [Suspect]
     Indication: CARDIOVASCULAR EVENT PROPHYLAXIS
     Route: 048
     Dates: start: 20130716
  6. ASPIRIN [Suspect]
     Indication: CARDIOVASCULAR EVENT PROPHYLAXIS
     Route: 048
     Dates: start: 20050429, end: 20130704
  7. ALLEGRA [Concomitant]
     Indication: MULTIPLE ALLERGIES
     Route: 065
     Dates: start: 20050429
  8. AMIDARONE [Concomitant]
     Indication: ATRIAL FIBRILLATION
     Route: 065
     Dates: start: 20130524
  9. CALCIUM [Concomitant]
     Indication: PROPHYLAXIS
     Route: 065
     Dates: start: 20071210
  10. ICAPS [Concomitant]
     Indication: MACULAR DEGENERATION
     Dosage: ONE TAB
     Route: 048
     Dates: start: 20111118
  11. LOSARTAN [Concomitant]
     Indication: HYPERTENSION
     Route: 065
     Dates: start: 20110114
  12. METHIMAZOLE [Concomitant]
     Indication: HYPOTHYROIDISM
     Route: 065
     Dates: start: 20080701
  13. TYLENOL [Concomitant]
     Indication: BACK PAIN
     Route: 065
     Dates: start: 20100415

REACTIONS (5)
  - Adenocarcinoma of colon [Recovered/Resolved]
  - Gastrointestinal haemorrhage [Recovered/Resolved]
  - Fatigue [Unknown]
  - Chest pain [Unknown]
  - Cough [Unknown]
